FAERS Safety Report 4633031-7 (Version None)
Quarter: 2005Q2

REPORT INFORMATION
  Report Type: 
  Country: None (occurrence: None)
  Receive Date: 20050412
  Receipt Date: 20050331
  Transmission Date: 20051028
  Serious: Yes (Hospitalization)
  Sender: FDA-Public Use
  Company Number: US-BRISTOL-MYERS SQUIBB COMPANY-12916912

PATIENT
  Age: 76 Year
  Sex: Male
  Weight: 88 kg

DRUGS (14)
  1. COUMADIN [Suspect]
     Dates: start: 19590101
  2. CELEBREX [Concomitant]
  3. CITRACAL [Concomitant]
     Dosage: APPROXIMATELY 10 YEARS
  4. FOLIC ACID [Concomitant]
     Dosage: APPROXIMATELY 10 YEARS
  5. FOSAMAX [Concomitant]
     Dosage: APPROXIMATELY 10 YEARS
  6. GENTAMICIN [Concomitant]
     Dosage: APPLIED TO RIGHT LEG
     Route: 061
  7. HYDROCHLOROTHIAZIDE [Concomitant]
     Dosage: APPROXIMATELY 10 YEARS
  8. MEVACOR [Concomitant]
     Dosage: APPROXIMATELY 10 YEARS
  9. NIASPAN [Concomitant]
     Dosage: APPROXIMATELY 10 YEARS
  10. TOPROL-XL [Concomitant]
     Dosage: APPROXIMATELY 10 YEARS
  11. VASOTEC [Concomitant]
     Dosage: APPROXIMATELY 10 YEARS
  12. VITAMIN B6 [Concomitant]
     Dosage: APPROXIMATELY 10 YEARS
  13. VITAMIN B-12 [Concomitant]
     Dosage: APPROXIMATELY 10 YEARS
  14. ZOLOFT [Concomitant]
     Dosage: APPROXIMATELY 10 YEARS

REACTIONS (3)
  - INFLUENZA [None]
  - MYOCARDIAL INFARCTION [None]
  - THROMBOSIS [None]
